FAERS Safety Report 7117857-6 (Version None)
Quarter: 2010Q4

REPORT INFORMATION
  Report Type: 
  Country: None (occurrence: None)
  Receive Date: 20101118
  Receipt Date: 20101118
  Transmission Date: 20110411
  Serious: Yes (Other)
  Sender: FDA-Public Use
  Company Number: None

PATIENT
  Age: 56 Year
  Sex: Female
  Weight: 73.4827 kg

DRUGS (2)
  1. CHANTIX [Suspect]
     Indication: SMOKING CESSATION THERAPY
     Dosage: 1 PILL FIRST 3 DAYS 0.5 PO  2 PILLS 1.0 MG. TWICE DAILY PO
     Route: 048
     Dates: start: 20101003, end: 20101101
  2. SEDATIVES [Concomitant]

REACTIONS (5)
  - ANGER [None]
  - PALPITATIONS [None]
  - SWELLING FACE [None]
  - TREMOR [None]
  - VERTIGO [None]
